FAERS Safety Report 23084516 (Version 1)
Quarter: 2023Q4

REPORT INFORMATION
  Report Type: Spontaneous
  Country: US (occurrence: US)
  Receive Date: 20231019
  Receipt Date: 20231019
  Transmission Date: 20240110
  Serious: Yes (Life-Threatening)
  Sender: FDA-Public Use
  Company Number: US-SANDOZ-SDZ2023US042762

PATIENT
  Age: 38 Year
  Sex: Male

DRUGS (3)
  1. METHYLPREDNISOLONE [Suspect]
     Active Substance: METHYLPREDNISOLONE
     Indication: Asthma
     Dosage: UNK
     Route: 065
  2. MAGNESIUM SULFATE [Concomitant]
     Active Substance: MAGNESIUM SULFATE
     Indication: Asthma
     Dosage: UNK
     Route: 065
  3. SEVOFLURANE [Concomitant]
     Active Substance: SEVOFLURANE
     Indication: Asthma
     Dosage: UNK
     Route: 055

REACTIONS (2)
  - Condition aggravated [Unknown]
  - Drug ineffective [Unknown]
